FAERS Safety Report 18780592 (Version 1)
Quarter: 2021Q1

REPORT INFORMATION
  Report Type: Spontaneous
  Country: US (occurrence: US)
  Receive Date: 20210122
  Receipt Date: 20210122
  Transmission Date: 20210419
  Serious: No
  Sender: FDA-Public Use
  Company Number: None

PATIENT
  Age: 70 Year
  Sex: Male
  Weight: 79.2 kg

DRUGS (7)
  1. ALBUTEROL. [Concomitant]
     Active Substance: ALBUTEROL
  2. ZAFIRCULAST [Concomitant]
  3. METFORMIN 500MG [Suspect]
     Active Substance: METFORMIN HYDROCHLORIDE
     Indication: BLOOD GLUCOSE INCREASED
     Dosage: ?          QUANTITY:500 TABLET(S);?
     Route: 048
     Dates: start: 20210101, end: 20210122
  4. IBUPROFEN. [Concomitant]
     Active Substance: IBUPROFEN
  5. CETIRIZINE [Concomitant]
     Active Substance: CETIRIZINE HYDROCHLORIDE
  6. INHALED STEROID [Concomitant]
  7. PROZAC [Concomitant]
     Active Substance: FLUOXETINE HYDROCHLORIDE

REACTIONS (11)
  - Myalgia [None]
  - Abdominal pain [None]
  - Diarrhoea [None]
  - Cold sweat [None]
  - Arthralgia [None]
  - Abdominal tenderness [None]
  - Heart rate increased [None]
  - Nausea [None]
  - Flatulence [None]
  - Dizziness [None]
  - Lethargy [None]

NARRATIVE: CASE EVENT DATE: 20210122
